FAERS Safety Report 18310332 (Version 4)
Quarter: 2021Q1

REPORT INFORMATION
  Report Type: Spontaneous
  Country: NL (occurrence: NL)
  Receive Date: 20200925
  Receipt Date: 20210116
  Transmission Date: 20210419
  Serious: Yes (Other)
  Sender: FDA-Public Use
  Company Number: NL-AUROBINDO-AUR-APL-2020-049330

PATIENT
  Age: 71 Year
  Sex: Female

DRUGS (9)
  1. DUODOPA [Suspect]
     Active Substance: CARBIDOPA\LEVODOPA
     Dosage: UNK (MD: 3.5 ML CD: 4.6 ML.H ED: 1.0 ML CDN: 1.2 ML/H)END 1.0ML
     Route: 065
  2. CLOZAPINE. [Suspect]
     Active Substance: CLOZAPINE
     Indication: PRODUCT USED FOR UNKNOWN INDICATION
     Dosage: UNK
     Route: 065
  3. CLOZAPINE. [Suspect]
     Active Substance: CLOZAPINE
     Dosage: UNK (DOSE INCREASED )
     Route: 065
  4. DUODOPA [Suspect]
     Active Substance: CARBIDOPA\LEVODOPA
     Dosage: UNK (MD: 3.5 ML CD: 4.7 ML/H ED: 1.0 ML REMAINS AT 24 HOURS)
     Route: 065
     Dates: start: 20171106
  5. DUODOPA [Suspect]
     Active Substance: CARBIDOPA\LEVODOPA
     Dosage: UNK, MD 3.5ML, CD 4.6ML/H, ED 2.0ML, CND 2.1ML/H, END 1.0ML REMAINS AT 16 HR
     Route: 050
  6. DUODOPA [Suspect]
     Active Substance: CARBIDOPA\LEVODOPA
     Indication: PARKINSON^S DISEASE
     Dosage: UNK (MD: 3.5, CD: 4.6, ED: 1.0, CND: 1.2; 24 HOUR ADMINISTRATION)
     Route: 065
  7. DUODOPA [Suspect]
     Active Substance: CARBIDOPA\LEVODOPA
     Dosage: UNK (CND 2.3 ML/H; END 1.0 ML, REMAINS AT 24 HOURS)
     Route: 050
  8. LORAZEPAM. [Suspect]
     Active Substance: LORAZEPAM
     Indication: PRODUCT USED FOR UNKNOWN INDICATION
     Dosage: UNK
     Route: 065
  9. MOVICOLON [Concomitant]
     Active Substance: POLYETHYLENE GLYCOL 3350\POTASSIUM CHLORIDE\SODIUM BICARBONATE\SODIUM CHLORIDE
     Indication: PRODUCT USED FOR UNKNOWN INDICATION
     Dosage: UNK (1.5 SACHETS)
     Route: 065

REACTIONS (20)
  - Hallucination [Recovered/Resolved]
  - On and off phenomenon [Not Recovered/Not Resolved]
  - Daydreaming [Recovered/Resolved]
  - Fine motor skill dysfunction [Unknown]
  - Cognitive disorder [Not Recovered/Not Resolved]
  - Insomnia [Not Recovered/Not Resolved]
  - Hyperkinesia [Recovering/Resolving]
  - Urinary incontinence [Not Recovered/Not Resolved]
  - Memory impairment [Recovered/Resolved]
  - Speech disorder [Not Recovered/Not Resolved]
  - Dependent personality disorder [Not Recovered/Not Resolved]
  - Therapeutic product effect delayed [Recovered/Resolved]
  - Hypnagogic hallucination [Not Recovered/Not Resolved]
  - Somnolence [Not Recovered/Not Resolved]
  - Dyskinesia [Unknown]
  - Tension [Not Recovered/Not Resolved]
  - Dystonia [Not Recovered/Not Resolved]
  - Anal incontinence [Not Recovered/Not Resolved]
  - Freezing phenomenon [Recovered/Resolved]
  - Unevaluable event [Not Recovered/Not Resolved]

NARRATIVE: CASE EVENT DATE: 2020
